FAERS Safety Report 6040493-X (Version None)
Quarter: 2009Q1

REPORT INFORMATION
  Report Type: 
  Country: None (occurrence: None)
  Receive Date: 20090116
  Receipt Date: 20080321
  Transmission Date: 20090719
  Serious: No
  Sender: FDA-Public Use
  Company Number: US-BRISTOL-MYERS SQUIBB COMPANY-14123459

PATIENT
  Age: 51 Year
  Sex: Male
  Weight: 140 kg

DRUGS (4)
  1. ABILIFY [Suspect]
     Indication: SCHIZOAFFECTIVE DISORDER
     Dosage: DOSE WAS REDUCED TO 30MG
     Dates: start: 20080312, end: 20080312
  2. PROPRANOLOL [Concomitant]
  3. EFFEXOR [Concomitant]
  4. TRAZODONE HCL [Concomitant]

REACTIONS (1)
  - CONVULSION [None]
